FAERS Safety Report 5823903-X (Version None)
Quarter: 2008Q3

REPORT INFORMATION
  Report Type: 
  Country: None (occurrence: None)
  Receive Date: 20080724
  Receipt Date: 20080711
  Transmission Date: 20090109
  Serious: Yes (Hospitalization, Other)
  Sender: FDA-Public Use
  Company Number: JPI-P-004127

PATIENT
  Age: 34 Year
  Sex: Male

DRUGS (5)
  1. XYREM [Suspect]
     Indication: INSOMNIA
     Dosage: 4.5 GM (2.25 GM, 2 IN 1 D), ORAL; 2.25 GM (2.25 GM, 1 IN 1 D), ORAL; 4.5 MG (4.5 GM, 1 IN 1 D), ORAL
     Route: 048
     Dates: start: 20080627, end: 20080708
  2. XYREM [Suspect]
     Indication: INSOMNIA
     Dosage: 4.5 GM (2.25 GM, 2 IN 1 D), ORAL; 2.25 GM (2.25 GM, 1 IN 1 D), ORAL; 4.5 MG (4.5 GM, 1 IN 1 D), ORAL
     Route: 048
     Dates: start: 20080708, end: 20080708
  3. XYREM [Suspect]
     Indication: INSOMNIA
     Dosage: 4.5 GM (2.25 GM, 2 IN 1 D), ORAL; 2.25 GM (2.25 GM, 1 IN 1 D), ORAL; 4.5 MG (4.5 GM, 1 IN 1 D), ORAL
     Route: 048
     Dates: start: 20080708, end: 20080709
  4. ALPRAZOLAM [Concomitant]
  5. OMEPRAZOLE [Concomitant]

REACTIONS (10)
  - ANXIETY [None]
  - BLOOD PRESSURE INCREASED [None]
  - CONDITION AGGRAVATED [None]
  - DEPRESSION [None]
  - EATING DISORDER [None]
  - FEELING ABNORMAL [None]
  - NAUSEA [None]
  - PANIC ATTACK [None]
  - POLLAKIURIA [None]
  - RESTLESSNESS [None]
